FAERS Safety Report 7741200-2 (Version None)
Quarter: 2011Q3

REPORT INFORMATION
  Report Type: 
  Country: None (occurrence: None)
  Receive Date: 20110909
  Receipt Date: 20110906
  Transmission Date: 20111222
  Serious: Yes (Death, Life-Threatening, Hospitalization, Other)
  Sender: FDA-Public Use
  Company Number: CU-BAYER-2011-080245

PATIENT
  Age: 42 Year
  Sex: Male
  Weight: 75 kg

DRUGS (6)
  1. ULTRAVIST 150 [Suspect]
     Indication: SPINAL MYELOGRAM
     Dosage: DAILY DOSE 10 ML
     Route: 037
     Dates: start: 20110831, end: 20110831
  2. LIDOCAINE [Concomitant]
     Indication: LOCAL ANAESTHESIA
     Dosage: 1 ML, UNK
     Route: 058
     Dates: start: 20110831, end: 20110831
  3. PIROXICAM [Concomitant]
     Indication: BACK PAIN
     Dosage: 2 DF, BID
     Route: 048
     Dates: start: 20110826, end: 20110827
  4. DIPIRONA [Concomitant]
     Indication: BACK PAIN
     Dosage: 2 DF, QID
     Route: 048
     Dates: start: 20110826, end: 20110827
  5. METHOCARBAMOL [Concomitant]
     Indication: BACK PAIN
     Dosage: 1 DF, TID
     Route: 048
     Dates: start: 20110826, end: 20110827
  6. VITAMIN B 1-6-12 [Concomitant]
     Indication: BACK PAIN
     Dosage: UNK
     Route: 030
     Dates: start: 20110826, end: 20110827

REACTIONS (13)
  - CARDIO-RESPIRATORY ARREST [None]
  - GRAND MAL CONVULSION [None]
  - CONFUSIONAL STATE [None]
  - DYSPNOEA [None]
  - VOMITING [None]
  - COMA [None]
  - PARAESTHESIA [None]
  - HAEMODYNAMIC INSTABILITY [None]
  - OPISTHOTONUS [None]
  - CYANOSIS [None]
  - ACUTE RESPIRATORY FAILURE [None]
  - NAUSEA [None]
  - MYOCLONUS [None]
